FAERS Safety Report 22251220 (Version 2)
Quarter: 2023Q2

REPORT INFORMATION
  Report Type: Spontaneous
  Country: JP (occurrence: JP)
  Receive Date: 20230425
  Receipt Date: 20230525
  Transmission Date: 20230721
  Serious: Yes (Hospitalization, Other)
  Sender: FDA-Public Use
  Company Number: JP-SCIEGENP-2023SCLIT00217

PATIENT
  Age: 62 Year
  Sex: Male

DRUGS (6)
  1. ROSUVASTATIN [Suspect]
     Active Substance: ROSUVASTATIN
     Indication: Myocardial ischaemia
     Route: 065
  2. ROSUVASTATIN [Suspect]
     Active Substance: ROSUVASTATIN
     Route: 065
  3. VADADUSTAT [Suspect]
     Active Substance: VADADUSTAT
     Indication: Nephrogenic anaemia
     Route: 065
  4. epoetin beta pegol [Concomitant]
     Indication: Nephrogenic anaemia
  5. epoetin beta pegol [Concomitant]
     Route: 065
  6. AZOSEMIDE [Concomitant]
     Active Substance: AZOSEMIDE
     Dosage: ON DAY 80
     Route: 065

REACTIONS (2)
  - Drug interaction [Unknown]
  - Rhabdomyolysis [Recovered/Resolved]
